APPROVED DRUG PRODUCT: VISIPAQUE 270
Active Ingredient: IODIXANOL
Strength: 55%
Dosage Form/Route: INJECTABLE;INJECTION
Application: N020351 | Product #001 | TE Code: AP
Applicant: GE HEALTHCARE
Approved: Mar 22, 1996 | RLD: Yes | RS: Yes | Type: RX